FAERS Safety Report 11942755 (Version 1)
Quarter: 2016Q1

REPORT INFORMATION
  Report Type: Spontaneous
  Country: US (occurrence: US)
  Receive Date: 20160125
  Receipt Date: 20160125
  Transmission Date: 20160526
  Serious: No
  Sender: FDA-Public Use
  Company Number: US-UNITED THERAPEUTICS-UNT-2015-007175

PATIENT
  Age: 63 Year
  Sex: Female
  Weight: 102.4 kg

DRUGS (3)
  1. REMODULIN [Suspect]
     Active Substance: TREPROSTINIL
     Dosage: 0.025 ?G/KG, CONTINUING
     Route: 058
  2. ADCIRCA [Concomitant]
     Active Substance: TADALAFIL
     Indication: PRODUCT USED FOR UNKNOWN INDICATION
  3. REMODULIN [Suspect]
     Active Substance: TREPROSTINIL
     Indication: PULMONARY HYPERTENSION
     Dosage: 0.042 ?G/KG/MIN, CONTINUING
     Route: 058
     Dates: start: 20101214

REACTIONS (8)
  - Asthenia [Not Recovered/Not Resolved]
  - Atrial fibrillation [Recovered/Resolved]
  - Headache [Not Recovered/Not Resolved]
  - Flushing [Not Recovered/Not Resolved]
  - Burning sensation [Not Recovered/Not Resolved]
  - Paraesthesia [Not Recovered/Not Resolved]
  - Accidental overdose [Recovered/Resolved]
  - Nausea [Not Recovered/Not Resolved]

NARRATIVE: CASE EVENT DATE: 201506
